FAERS Safety Report 7691437-6 (Version None)
Quarter: 2011Q3

REPORT INFORMATION
  Report Type: 
  Country: None (occurrence: None)
  Receive Date: 20110818
  Receipt Date: 20110809
  Transmission Date: 20111222
  Serious: Yes (Other)
  Sender: FDA-Public Use
  Company Number: US-JNJFOC-20110806114

PATIENT
  Sex: Female

DRUGS (6)
  1. TYLENOL-500 [Suspect]
  2. BC POWDER NOS [Suspect]
     Indication: MIGRAINE
  3. TYLENOL-500 [Suspect]
     Indication: MIGRAINE
  4. GOODYS [Suspect]
     Indication: MIGRAINE
  5. MOTRIN [Suspect]
     Indication: MIGRAINE
  6. ASPIRIN [Suspect]
     Indication: MIGRAINE

REACTIONS (2)
  - GASTRIC ULCER [None]
  - OESOPHAGITIS [None]
